FAERS Safety Report 7305126-0 (Version None)
Quarter: 2011Q1

REPORT INFORMATION
  Report Type: 
  Country: None (occurrence: None)
  Receive Date: 20110222
  Receipt Date: 20110212
  Transmission Date: 20110831
  Serious: Yes (Other)
  Sender: FDA-Public Use
  Company Number: US-CELGENEUS-163-21880-11011496

PATIENT
  Age: 57 Year
  Sex: Male
  Weight: 100.7 kg

DRUGS (9)
  1. ZOLEDRONIC ACID [Suspect]
     Route: 065
  2. PREDNISONE [Suspect]
     Indication: PROSTATE CANCER
     Route: 048
     Dates: start: 20100830
  3. PREDNISONE [Suspect]
     Route: 048
     Dates: start: 20110103, end: 20110111
  4. DOCETAXEL [Suspect]
     Route: 051
     Dates: start: 20110103, end: 20110103
  5. REVLIMID [Suspect]
     Indication: PROSTATE CANCER
     Route: 048
     Dates: start: 20100830
  6. DOCETAXEL [Suspect]
     Indication: PROSTATE CANCER
     Route: 051
     Dates: start: 20100830
  7. REVLIMID [Suspect]
     Route: 048
     Dates: start: 20110103, end: 20110111
  8. BEVACIZUMAB [Suspect]
     Indication: PROSTATE CANCER
     Route: 051
     Dates: start: 20100830
  9. BEVACIZUMAB [Suspect]
     Route: 051
     Dates: start: 20110103, end: 20110103

REACTIONS (1)
  - OSTEONECROSIS OF JAW [None]
